FAERS Safety Report 25417816 (Version 2)
Quarter: 2025Q2

REPORT INFORMATION
  Report Type: Spontaneous
  Country: CA (occurrence: CA)
  Receive Date: 20250610
  Receipt Date: 20250617
  Transmission Date: 20250716
  Serious: Yes (Other)
  Sender: MYLAN
  Company Number: CA-MYLANLABS-2025M1048024

PATIENT
  Age: 77 Year
  Sex: Female

DRUGS (1)
  1. AMLODIPINE [Suspect]
     Active Substance: AMLODIPINE BESYLATE
     Indication: Blood pressure management
     Dosage: 10 MILLIGRAM, QD (1 EVERY 1 DAYS)

REACTIONS (1)
  - Blood pressure inadequately controlled [Recovered/Resolved]
